FAERS Safety Report 8298505-9 (Version None)
Quarter: 2012Q2

REPORT INFORMATION
  Report Type: 
  Country: None (occurrence: None)
  Receive Date: 20120419
  Receipt Date: 20120405
  Transmission Date: 20120825
  Serious: Yes (Other)
  Sender: FDA-Public Use
  Company Number: US-MYLANLABS-2012S1007486

PATIENT
  Age: 49 Year
  Sex: Female

DRUGS (7)
  1. TETRACYCLINE [Suspect]
     Route: 048
     Dates: end: 20110601
  2. HYDROCHLOROTHIAZIDE [Concomitant]
     Dosage: UNKNOWN
     Route: 048
  3. COLECALCIFEROL [Concomitant]
     Dosage: UNKNOWN
     Route: 048
  4. TETRACYCLINE [Suspect]
     Indication: ROSACEA
     Route: 048
     Dates: start: 20100501
  5. ALIGN [Concomitant]
     Dosage: UNKNOWN
     Route: 048
  6. CALCIUM CARBONATE [Concomitant]
     Dosage: UNKNOWN
     Route: 048
  7. LEVOTHYROXINE SODIUM [Concomitant]
     Dosage: UNKNOWN
     Route: 048

REACTIONS (1)
  - HEPATOTOXICITY [None]
